FAERS Safety Report 4627368-5 (Version None)
Quarter: 2005Q1

REPORT INFORMATION
  Report Type: 
  Country: None (occurrence: None)
  Receive Date: 20050331
  Receipt Date: 20050318
  Transmission Date: 20050727
  Serious: Yes (Other)
  Sender: FDA-Public Use
  Company Number: 2005049337

PATIENT
  Age: 46 Year
  Sex: Female

DRUGS (2)
  1. TRANEXAMIC ACID (TRANEXAMIC ACID) [Suspect]
     Indication: MENORRHAGIA
     Dosage: ORAL
     Route: 048
     Dates: start: 20041216, end: 20041219
  2. FERROUS SULFATE TAB [Concomitant]

REACTIONS (2)
  - HOLMES-ADIE PUPIL [None]
  - TINNITUS [None]
